FAERS Safety Report 4786860-3 (Version None)
Quarter: 2005Q3

REPORT INFORMATION
  Report Type: 
  Country: None (occurrence: None)
  Receive Date: 20050930
  Receipt Date: 20050919
  Transmission Date: 20060218
  Serious: Yes (Death, Hospitalization)
  Sender: FDA-Public Use
  Company Number: ERD2002A00151

PATIENT
  Age: 68 Year
  Sex: Male

DRUGS (7)
  1. PIOGLITAZONE HCL [Suspect]
     Indication: DIABETES MELLITUS NON-INSULIN-DEPENDENT
     Dosage: 45 MG ORAL
     Route: 048
     Dates: start: 20020419, end: 20020715
  2. ISOSORBIDE MONONITRATE [Concomitant]
  3. ISOPTIN [Concomitant]
  4. LIPANTHYL (FENOFIBRATE) [Concomitant]
  5. ACARD (ACETYLSALICYLIC ACID) [Concomitant]
  6. PENTOHEXAL (PENTOXIFYLLINE) [Concomitant]
  7. INSULIN [Concomitant]

REACTIONS (4)
  - CARDIAC FAILURE [None]
  - CONDITION AGGRAVATED [None]
  - ELECTROCARDIOGRAM ST SEGMENT ELEVATION [None]
  - PULMONARY OEDEMA [None]
